FAERS Safety Report 16201228 (Version 1)
Quarter: 2019Q2

REPORT INFORMATION
  Report Type: Spontaneous
  Country: US (occurrence: US)
  Receive Date: 20190311
  Receipt Date: 20190311
  Transmission Date: 20190711
  Serious: Yes (Disabling)
  Sender: FDA-Public Use
  Company Number: None

PATIENT

DRUGS (1)
  1. MUPIROCIN 2% OINTMENT 22GM [Suspect]
     Active Substance: MUPIROCIN
     Indication: PREOPERATIVE CARE
     Dosage: ?          QUANTITY:22 G GRAM(S);?
     Route: 045
     Dates: start: 20190112, end: 20190117

REACTIONS (1)
  - Diarrhoea [None]

NARRATIVE: CASE EVENT DATE: 20190112
